FAERS Safety Report 5057080-2 (Version None)
Quarter: 2006Q2

REPORT INFORMATION
  Report Type: 
  Country: None (occurrence: None)
  Receive Date: 20060622
  Receipt Date: 20060427
  Transmission Date: 20061013
  Serious: Yes (Death)
  Sender: FDA-Public Use
  Company Number: US-JNJFOC-20060403581

PATIENT
  Age: 48 Year
  Sex: Male

DRUGS (1)
  1. SANDOZ FENTANYL TRANSDERMAL SYSTEM (FENTANYL) PATCH [Suspect]
     Indication: PAIN
     Dosage: SEE IMAGE
     Route: 062

REACTIONS (1)
  - DRUG TOXICITY [None]
